FAERS Safety Report 8282495-9 (Version None)
Quarter: 2012Q2

REPORT INFORMATION
  Report Type: 
  Country: None (occurrence: None)
  Receive Date: 20120413
  Receipt Date: 20120403
  Transmission Date: 20120825
  Serious: Yes (Hospitalization)
  Sender: FDA-Public Use
  Company Number: JP-EISAI INC-E7389-02227-CLI-JP

PATIENT
  Sex: Female
  Weight: 60 kg

DRUGS (1)
  1. EPIRUBICIN HYDROCHLORIDE [Suspect]
     Indication: LEIOMYOSARCOMA
     Route: 041
     Dates: start: 20120117, end: 20120313

REACTIONS (1)
  - CARDIAC FAILURE [None]
